FAERS Safety Report 18574903 (Version 1)
Quarter: 2020Q4

REPORT INFORMATION
  Report Type: Spontaneous
  Country: AU (occurrence: AU)
  Receive Date: 20201203
  Receipt Date: 20201203
  Transmission Date: 20210114
  Serious: No
  Sender: FDA-Public Use
  Company Number: AU-SUNOVION-2020DSP015198

PATIENT
  Sex: Female

DRUGS (3)
  1. LATUDA [Suspect]
     Active Substance: LURASIDONE HYDROCHLORIDE
     Indication: PRODUCT USED FOR UNKNOWN INDICATION
     Dosage: UNK
     Route: 048
  2. CLOZAPINE. [Concomitant]
     Active Substance: CLOZAPINE
     Dosage: ONE TABLET IN THE EVENING
     Route: 048
  3. ARIPIPRAZOLE. [Concomitant]
     Active Substance: ARIPIPRAZOLE
     Dosage: ONCE A MONTH
     Route: 030
     Dates: start: 20201110, end: 20201110

REACTIONS (4)
  - Hypersensitivity [Unknown]
  - Headache [Unknown]
  - Vomiting [Unknown]
  - Insomnia [Unknown]
